FAERS Safety Report 23535486 (Version 1)
Quarter: 2024Q1

REPORT INFORMATION
  Report Type: Spontaneous
  Country: US (occurrence: None)
  Receive Date: 20240218
  Receipt Date: 20240218
  Transmission Date: 20240409
  Serious: Yes (Other)
  Sender: FDA-Public Use
  Company Number: 2024A035030

PATIENT
  Sex: Female

DRUGS (1)
  1. FASLODEX [Suspect]
     Active Substance: FULVESTRANT
     Route: 030

REACTIONS (5)
  - Malignant neoplasm progression [Unknown]
  - Injection site bruising [Unknown]
  - Injection site mass [Unknown]
  - Incorrect route of product administration [Unknown]
  - Incorrect dose administered [Unknown]
